FAERS Safety Report 11435942 (Version 1)
Quarter: 2015Q3

REPORT INFORMATION
  Report Type: Spontaneous
  Country: US (occurrence: US)
  Receive Date: 20150821
  Receipt Date: 20150821
  Transmission Date: 20151125
  Serious: No
  Sender: FDA-Public Use
  Company Number: US-ELI_LILLY_AND_COMPANY-US201402001935

PATIENT
  Sex: Male

DRUGS (7)
  1. HUMULIN N [Suspect]
     Active Substance: INSULIN HUMAN
     Dosage: 5 U, EACH EVENING
  2. METFORMIN [Concomitant]
     Active Substance: METFORMIN HYDROCHLORIDE
  3. SIMVASTATIN. [Concomitant]
     Active Substance: SIMVASTATIN
     Indication: BLOOD CHOLESTEROL INCREASED
  4. HUMULIN N [Suspect]
     Active Substance: INSULIN HUMAN
     Dosage: 5 U, EACH EVENING
     Route: 065
     Dates: start: 201309
  5. LISINOPRIL. [Concomitant]
     Active Substance: LISINOPRIL
     Indication: HYPERTENSION
  6. HUMULIN N [Suspect]
     Active Substance: INSULIN HUMAN
     Indication: TYPE 2 DIABETES MELLITUS
     Dosage: 55 U, EACH MORNING
     Route: 065
     Dates: start: 201309
  7. HUMULIN N [Suspect]
     Active Substance: INSULIN HUMAN
     Dosage: 55 U, EACH MORNING
     Route: 065

REACTIONS (3)
  - Injection site haemorrhage [Unknown]
  - Blood glucose decreased [Unknown]
  - Blood glucose increased [Unknown]
